FAERS Safety Report 17684487 (Version 1)
Quarter: 2020Q2

REPORT INFORMATION
  Report Type: Spontaneous
  Country: US (occurrence: US)
  Receive Date: 20200417
  Receipt Date: 20200417
  Transmission Date: 20200714
  Serious: Yes (Hospitalization)
  Sender: FDA-Public Use
  Company Number: None

PATIENT
  Age: 52 Year
  Sex: Female

DRUGS (1)
  1. BOSENTAN 125 MG TABLETS 60/BO (TEVA): [Suspect]
     Active Substance: BOSENTAN
     Indication: PULMONARY ARTERIAL HYPERTENSION
     Route: 048
     Dates: start: 20190625

REACTIONS (3)
  - Cardiac failure [None]
  - Pulmonary hypertension [None]
  - Respiratory failure [None]

NARRATIVE: CASE EVENT DATE: 20200415
